FAERS Safety Report 25355718 (Version 2)
Quarter: 2025Q2

REPORT INFORMATION
  Report Type: Spontaneous
  Country: FI (occurrence: FI)
  Receive Date: 20250525
  Receipt Date: 20250605
  Transmission Date: 20250717
  Serious: Yes (Hospitalization, Other)
  Sender: ACCORD
  Company Number: FI-Accord-485666

PATIENT
  Age: 28 Year
  Sex: Female
  Weight: 67 kg

DRUGS (16)
  1. METHOTREXATE [Suspect]
     Active Substance: METHOTREXATE
     Indication: Juvenile idiopathic arthritis
     Dosage: IN PRE-FILLED INJECTOR, STRENGTH: 20-25 MG, DOSE: 25 MG/WEEK
     Dates: start: 20250113, end: 20250203
  2. SULFASALAZINE [Concomitant]
     Active Substance: SULFASALAZINE
     Indication: Arthritis
  3. KEPPRA [Concomitant]
     Active Substance: LEVETIRACETAM
     Indication: Seizure
     Dates: start: 2011
  4. ABSENOR [Concomitant]
     Indication: Seizure
     Dates: start: 2011
  5. VIMPAT [Concomitant]
     Active Substance: LACOSAMIDE
     Indication: Epilepsy
  6. QUETIAPINE [Concomitant]
     Active Substance: QUETIAPINE
     Indication: Epilepsy
  7. PERAMPANEL [Concomitant]
     Active Substance: PERAMPANEL
     Indication: Epilepsy
  8. FOLIC ACID [Concomitant]
     Active Substance: FOLIC ACID
     Indication: Product used for unknown indication
  9. LYRICA [Concomitant]
     Active Substance: PREGABALIN
     Indication: Epilepsy
     Dates: start: 2009
  10. KEPPRA [Concomitant]
     Active Substance: LEVETIRACETAM
     Indication: Seizure
     Dates: start: 201601
  11. KEPPRA [Concomitant]
     Active Substance: LEVETIRACETAM
     Indication: Seizure
  12. ABSENOR [Concomitant]
     Indication: Seizure
  13. ABSENOR [Concomitant]
     Indication: Seizure
  14. KEPPRA [Concomitant]
     Active Substance: LEVETIRACETAM
     Indication: Seizure
  15. ABSENOR [Concomitant]
     Indication: Epilepsy
  16. ABSENOR [Concomitant]
     Indication: Epilepsy

REACTIONS (1)
  - Seizure [Recovered/Resolved]

NARRATIVE: CASE EVENT DATE: 20250129
